FAERS Safety Report 7941019-3 (Version None)
Quarter: 2011Q4

REPORT INFORMATION
  Report Type: 
  Country: None (occurrence: None)
  Receive Date: 20111128
  Receipt Date: 20111121
  Transmission Date: 20120403
  Serious: Yes (Hospitalization)
  Sender: FDA-Public Use
  Company Number: US-AMGEN-USASP2011061477

PATIENT
  Sex: Female

DRUGS (1)
  1. ENBREL [Suspect]
     Indication: PSORIASIS
     Dosage: 25 MG, 2 TIMES/WK
     Dates: start: 20060101, end: 20110901

REACTIONS (5)
  - CARDIAC FAILURE CONGESTIVE [None]
  - CARBON DIOXIDE INCREASED [None]
  - CARDIAC MURMUR [None]
  - BLOOD GLUCOSE DECREASED [None]
  - PSORIASIS [None]
